FAERS Safety Report 21058105 (Version 1)
Quarter: 2022Q3

REPORT INFORMATION
  Report Type: Spontaneous
  Country: JP (occurrence: JP)
  Receive Date: 20220708
  Receipt Date: 20220708
  Transmission Date: 20221026
  Serious: Yes (Death, Other)
  Sender: FDA-Public Use
  Company Number: JP-BAYER-2022A093026

PATIENT
  Age: 67 Year
  Sex: Female

DRUGS (1)
  1. IOPAMIRON [Suspect]
     Active Substance: IOPAMIDOL
     Indication: Diagnostic procedure
     Dosage: UNK
     Dates: start: 202102, end: 202102

REACTIONS (1)
  - Anaphylactic shock [Fatal]
